FAERS Safety Report 6030083-7 (Version None)
Quarter: 2009Q1

REPORT INFORMATION
  Report Type: 
  Country: None (occurrence: None)
  Receive Date: 20090106
  Receipt Date: 20090106
  Transmission Date: 20090719
  Serious: Yes (Hospitalization)
  Sender: FDA-Public Use
  Company Number: None

PATIENT
  Age: 47 Year
  Sex: Female
  Weight: 97.5234 kg

DRUGS (2)
  1. OCELLA [Suspect]
     Indication: MENOPAUSE
     Dosage: 1 TABLET DAILY PO
     Route: 048
     Dates: start: 20081101, end: 20081224
  2. YASMIN [Suspect]

REACTIONS (4)
  - BRAIN INJURY [None]
  - CEREBROVASCULAR ACCIDENT [None]
  - CONVULSION [None]
  - THROMBOSIS [None]
